FAERS Safety Report 9790682 (Version 2)
Quarter: 2014Q1

REPORT INFORMATION
  Report Type: Spontaneous
  Country: JP (occurrence: JP)
  Receive Date: 20131231
  Receipt Date: 20140328
  Transmission Date: 20141002
  Serious: Yes (Other)
  Sender: FDA-Public Use
  Company Number: JP-BRISTOL-MYERS SQUIBB COMPANY-19951680

PATIENT
  Age: 73 Year
  Sex: Male

DRUGS (6)
  1. ELIQUIS [Suspect]
     Indication: THROMBOSIS PROPHYLAXIS
     Dosage: TABS
     Route: 048
     Dates: start: 20131204, end: 20131218
  2. HALFDIGOXIN [Concomitant]
     Dosage: ONGOING
     Route: 048
  3. ALDACTONE-A [Concomitant]
     Dosage: ONGOING
     Route: 048
  4. BLOPRESS [Concomitant]
     Dosage: ONGOING
     Route: 048
  5. FEBUXOSTAT [Concomitant]
  6. LASIX [Concomitant]

REACTIONS (1)
  - Cardiac failure [Recovered/Resolved]
